FAERS Safety Report 4745371-1 (Version None)
Quarter: 2005Q3

REPORT INFORMATION
  Report Type: 
  Country: None (occurrence: None)
  Receive Date: 20050815
  Receipt Date: 20050728
  Transmission Date: 20060218
  Serious: Yes (Hospitalization)
  Sender: FDA-Public Use
  Company Number: 2005S1004664

PATIENT
  Age: 76 Year
  Sex: Female
  Weight: 71.2147 kg

DRUGS (9)
  1. DILTIAZEM HYDROCHLORIDE [Suspect]
     Indication: ANGINA PECTORIS
     Dosage: 240 MG; QD; PO
     Route: 048
     Dates: start: 20040101, end: 20050408
  2. DILTIAZEM HYDROCHLORIDE [Suspect]
     Indication: ATRIAL FIBRILLATION
     Dosage: 240 MG; QD; PO
     Route: 048
     Dates: start: 20040101, end: 20050408
  3. DILTIAZEM HYDROCHLORIDE [Suspect]
     Indication: CARDIAC FAILURE CONGESTIVE
     Dosage: 240 MG; QD; PO
     Route: 048
     Dates: start: 20040101, end: 20050408
  4. FUROSEMIDE [Concomitant]
  5. POTASSIUM CHLORIDE [Concomitant]
  6. ASPIRIN [Concomitant]
  7. ZOLPIDEM TARTRATE [Concomitant]
  8. IPRATROPIUM BROMIDE/SALBUTAMOL SULFATE [Concomitant]
  9. LEVOSALBUTAMOL [Concomitant]

REACTIONS (7)
  - ABDOMINAL DISTENSION [None]
  - FLUID RETENTION [None]
  - HEART RATE INCREASED [None]
  - LETHARGY [None]
  - NAUSEA [None]
  - PHARMACEUTICAL PRODUCT COMPLAINT [None]
  - RESPIRATORY RATE INCREASED [None]
